FAERS Safety Report 21394744 (Version 2)
Quarter: 2022Q4

REPORT INFORMATION
  Report Type: Spontaneous
  Country: US (occurrence: US)
  Receive Date: 20220930
  Receipt Date: 20221012
  Transmission Date: 20230113
  Serious: Yes (Hospitalization)
  Sender: FDA-Public Use
  Company Number: US-JNJFOC-20220948688

PATIENT
  Age: 46 Year
  Sex: Female
  Weight: 95.340 kg

DRUGS (2)
  1. PALIPERIDONE [Suspect]
     Active Substance: PALIPERIDONE
     Indication: Schizoaffective disorder
     Route: 048
  2. PALIPERIDONE [Suspect]
     Active Substance: PALIPERIDONE
     Indication: Bipolar disorder
     Route: 048

REACTIONS (4)
  - Schizoaffective disorder bipolar type [Unknown]
  - Product dose omission issue [Unknown]
  - Aggression [Unknown]
  - Incorrect dose administered [Unknown]
